FAERS Safety Report 24061098 (Version 2)
Quarter: 2024Q3

REPORT INFORMATION
  Report Type: Spontaneous
  Country: US (occurrence: US)
  Receive Date: 20240708
  Receipt Date: 20240725
  Transmission Date: 20241016
  Serious: No
  Sender: PFIZER
  Company Number: US-PFIZER INC-202400208173

PATIENT
  Age: 68 Year
  Sex: Female
  Weight: 48.073 kg

DRUGS (3)
  1. PAXLOVID [Suspect]
     Active Substance: NIRMATRELVIR\RITONAVIR
     Indication: COVID-19 treatment
     Dosage: UNK, 2X/DAY
     Route: 048
     Dates: start: 20240625, end: 20240630
  2. VITAMINS NOS [Concomitant]
     Active Substance: VITAMINS
     Indication: Vitamin supplementation
     Dosage: 2 DF, DAILY
  3. MENAQUINONE 6 [Concomitant]
     Active Substance: MENAQUINONE 6
     Indication: Vitamin supplementation
     Dosage: 15 MG, 3X/DAY

REACTIONS (2)
  - COVID-19 [Recovering/Resolving]
  - Disease recurrence [Recovering/Resolving]

NARRATIVE: CASE EVENT DATE: 20240706
